FAERS Safety Report 5499909-X (Version None)
Quarter: 2007Q4

REPORT INFORMATION
  Report Type: 
  Country: None (occurrence: None)
  Receive Date: 20071026
  Receipt Date: 20071016
  Transmission Date: 20080405
  Serious: Yes (Other)
  Sender: FDA-Public Use
  Company Number: US-PFIZER INC-2007087284

PATIENT
  Sex: Male
  Weight: 88.6 kg

DRUGS (9)
  1. LYRICA [Suspect]
     Indication: PAIN
  2. LYRICA [Suspect]
     Indication: NERVE INJURY
  3. HYDROCODONE BITARTRATE + ACETAMINOPHEN [Concomitant]
  4. OMEPRAZOLE [Concomitant]
     Indication: GASTROOESOPHAGEAL REFLUX DISEASE
  5. NITROFURANTOIN [Concomitant]
  6. PIROXICAM [Concomitant]
     Indication: ARTHRITIS
  7. ATENOLOL [Concomitant]
     Indication: HYPERTENSION
  8. PRAMIPEXOLE DIHYDROCHLORIDE [Concomitant]
     Indication: RESTLESS LEGS SYNDROME
  9. SIMVASTATIN [Concomitant]
     Indication: BLOOD CHOLESTEROL INCREASED

REACTIONS (2)
  - INTRAOCULAR PRESSURE INCREASED [None]
  - VISUAL FIELD DEFECT [None]
